FAERS Safety Report 13167453 (Version 5)
Quarter: 2017Q2

REPORT INFORMATION
  Report Type: Spontaneous
  Country: US (occurrence: US)
  Receive Date: 20170131
  Receipt Date: 20170530
  Transmission Date: 20170830
  Serious: No
  Sender: FDA-Public Use
  Company Number: US-PFIZER INC-2017037155

PATIENT
  Age: 67 Year
  Sex: Female

DRUGS (3)
  1. IBRANCE [Suspect]
     Active Substance: PALBOCICLIB
     Dosage: 125 MG, CYCLIC (EVERYDAY (QD) FOR 21 DAYS ON AND 7 DAYS OFF)
     Route: 048
     Dates: start: 20170110
  2. FASLODEX [Suspect]
     Active Substance: FULVESTRANT
     Dosage: 125 MG, UNK
  3. IBRANCE [Suspect]
     Active Substance: PALBOCICLIB
     Indication: BREAST CANCER FEMALE
     Dosage: 125 MG, CYCLIC [EVERY DAY FOR 21 DAYS THEN TAKE 7 DAYS OFF]
     Dates: start: 20170106

REACTIONS (6)
  - Neuropathy peripheral [Unknown]
  - Pruritus [Unknown]
  - Feeling cold [Unknown]
  - Nausea [Unknown]
  - Stomatitis [Unknown]
  - Urticaria [Unknown]
